FAERS Safety Report 23364566 (Version 1)
Quarter: 2024Q1

REPORT INFORMATION
  Report Type: Spontaneous
  Country: CN (occurrence: None)
  Receive Date: 20240104
  Receipt Date: 20240104
  Transmission Date: 20240409
  Serious: Yes (Other)
  Sender: FDA-Public Use
  Company Number: CN-ROCHE-3483666

PATIENT
  Age: 63 Year
  Sex: Male
  Weight: 40 kg

DRUGS (7)
  1. AVASTIN [Suspect]
     Active Substance: BEVACIZUMAB
     Indication: Lung adenocarcinoma
     Route: 041
     Dates: start: 20231208, end: 20231208
  2. CADONILIMAB [Suspect]
     Active Substance: CADONILIMAB
     Indication: Lung adenocarcinoma
     Route: 041
     Dates: start: 20231208, end: 20231208
  3. CARBOPLATIN [Suspect]
     Active Substance: CARBOPLATIN
     Indication: Lung adenocarcinoma
     Route: 041
     Dates: start: 20231208, end: 20231208
  4. PACLITAXEL [Suspect]
     Active Substance: PACLITAXEL
     Indication: Lung adenocarcinoma
     Route: 041
     Dates: start: 20231208, end: 20231208
  5. SODIUM CHLORIDE [Concomitant]
     Active Substance: SODIUM CHLORIDE
     Route: 041
     Dates: start: 20231208, end: 20231208
  6. SODIUM CHLORIDE [Concomitant]
     Active Substance: SODIUM CHLORIDE
     Route: 041
     Dates: start: 20231208, end: 20231208
  7. DEXTROSE [Concomitant]
     Active Substance: DEXTROSE\DEXTROSE MONOHYDRATE
     Route: 041
     Dates: start: 20231208, end: 20231208

REACTIONS (2)
  - Hypokalaemia [Unknown]
  - Decreased appetite [Unknown]

NARRATIVE: CASE EVENT DATE: 20231213
